FAERS Safety Report 16706090 (Version 1)
Quarter: 2019Q3

REPORT INFORMATION
  Report Type: Report from Study
  Country: DE (occurrence: DE)
  Receive Date: 20190815
  Receipt Date: 20190815
  Transmission Date: 20191004
  Serious: Yes (Other)
  Sender: FDA-Public Use
  Company Number: DE-AMGEN-DEUSL2019128361

PATIENT
  Age: 58 Year
  Sex: Female

DRUGS (1)
  1. SINGLE DOSE PREFILLED SYRINGE(AMGEVITA) [Suspect]
     Active Substance: ADALIMUMAB
     Indication: PSORIATIC ARTHROPATHY
     Dosage: 40 MILLIGRAM, Q2WK
     Route: 065

REACTIONS (3)
  - Dizziness [Unknown]
  - Night sweats [Unknown]
  - Deafness [Unknown]
